FAERS Safety Report 5130099-9 (Version None)
Quarter: 2006Q4

REPORT INFORMATION
  Report Type: 
  Country: None (occurrence: None)
  Receive Date: 20061013
  Receipt Date: 20060608
  Transmission Date: 20070319
  Serious: Yes (Life-Threatening)
  Sender: FDA-Public Use
  Company Number: FABR-11420

PATIENT
  Age: 45 Year
  Sex: Male
  Weight: 66 kg

DRUGS (6)
  1. FABRAZYME [Suspect]
     Indication: FABRY'S DISEASE
     Dosage: 70 MG Q2WKS IV
     Route: 042
     Dates: start: 20050301, end: 20060227
  2. ALLEGRA [Concomitant]
  3. TYLENOL [Concomitant]
  4. ENALAPRIL MALEATE [Concomitant]
  5. CARBAMAZEPINE [Concomitant]
  6. CALCIUM CARBONATE [Concomitant]

REACTIONS (1)
  - ANAPHYLACTIC REACTION [None]
